FAERS Safety Report 11284115 (Version 2)
Quarter: 2015Q4

REPORT INFORMATION
  Report Type: Report from Study
  Country: US (occurrence: US)
  Receive Date: 20150720
  Receipt Date: 20151230
  Transmission Date: 20160304
  Serious: No
  Sender: FDA-Public Use
  Company Number: US-AEGERION PHARMACEUTICAL INC.-AEGR001431

PATIENT
  Age: 78 Year
  Sex: Female
  Weight: 68.48 kg

DRUGS (1)
  1. JUXTAPID [Suspect]
     Active Substance: LOMITAPIDE MESYLATE
     Indication: TYPE IIA HYPERLIPIDAEMIA
     Dosage: 5 MG, UNK
     Route: 048
     Dates: start: 20150409, end: 20150426

REACTIONS (4)
  - Therapy cessation [Not Recovered/Not Resolved]
  - Palpitations [Unknown]
  - Drug intolerance [Unknown]
  - Somnolence [Unknown]

NARRATIVE: CASE EVENT DATE: 2015
